FAERS Safety Report 6445436-2 (Version None)
Quarter: 2009Q4

REPORT INFORMATION
  Report Type: 
  Country: None (occurrence: None)
  Receive Date: 20091118
  Receipt Date: 20091106
  Transmission Date: 20100525
  Serious: Yes (Hospitalization)
  Sender: FDA-Public Use
  Company Number: PHHY2009MX42968

PATIENT
  Sex: Male

DRUGS (5)
  1. DIOVAN HCT [Suspect]
     Indication: HYPERTENSION
     Dosage: 1 TABLET (160/25MG) PER DAY
     Route: 048
     Dates: start: 20040101
  2. DIOVAN HCT [Suspect]
     Dosage: HALF TABLET (160/25 MG) PER DAY
     Route: 048
     Dates: start: 20090616
  3. ISOSORBIDE [Concomitant]
  4. VERAPAMIL [Concomitant]
  5. LIPITOR [Concomitant]

REACTIONS (3)
  - ANGINA PECTORIS [None]
  - CHEST PAIN [None]
  - DISCOMFORT [None]
